FAERS Safety Report 15652823 (Version 1)
Quarter: 2018Q4

REPORT INFORMATION
  Report Type: Spontaneous
  Country: US (occurrence: US)
  Receive Date: 20181123
  Receipt Date: 20181123
  Transmission Date: 20190205
  Serious: Yes (Other)
  Sender: FDA-Public Use
  Company Number: US-NOVOPROD-591758

PATIENT
  Age: 88 Year
  Sex: Female

DRUGS (4)
  1. LEVEMIR [Concomitant]
     Active Substance: INSULIN DETEMIR
     Indication: TYPE 2 DIABETES MELLITUS
     Route: 058
  2. NOVOLOG [Suspect]
     Active Substance: INSULIN ASPART
     Indication: TYPE 2 DIABETES MELLITUS
     Dosage: 8 U, BEFORE BREAKFAST
     Route: 058
     Dates: end: 201803
  3. NOVOLOG [Suspect]
     Active Substance: INSULIN ASPART
     Dosage: 9 UNITS BREAKFAST, 8 UNITS LUNCH AND 6 UNITS DINNER
     Route: 058
     Dates: start: 201803
  4. NOVOLOG [Suspect]
     Active Substance: INSULIN ASPART
     Dosage: 8 U, SINGLE (ADDITIONAL DOSE BEFORE BREAKFAST)
     Route: 058
     Dates: start: 20180312, end: 20180312

REACTIONS (2)
  - Blood glucose decreased [Unknown]
  - Extra dose administered [Recovered/Resolved]

NARRATIVE: CASE EVENT DATE: 20180312
